FAERS Safety Report 4777631-2 (Version None)
Quarter: 2005Q3

REPORT INFORMATION
  Report Type: 
  Country: None (occurrence: None)
  Receive Date: 20050921
  Receipt Date: 20050907
  Transmission Date: 20060218
  Serious: Yes (Death)
  Sender: FDA-Public Use
  Company Number: USA0509107485

PATIENT
  Age: 54 Year
  Sex: Female

DRUGS (2)
  1. CYMBALTA [Suspect]
     Indication: MAJOR DEPRESSION
  2. ZYPREXA [Suspect]
     Indication: MAJOR DEPRESSION
     Dosage: 20 MG DAY

REACTIONS (1)
  - DEATH [None]
